FAERS Safety Report 18101514 (Version 1)
Quarter: 2020Q3

REPORT INFORMATION
  Report Type: Spontaneous
  Country: US (occurrence: US)
  Receive Date: 20200801
  Receipt Date: 20200801
  Transmission Date: 20201103
  Serious: No
  Sender: FDA-Public Use
  Company Number: US-TEVA-2020-US-1808034

PATIENT
  Sex: Male

DRUGS (10)
  1. DIPHEN/ATROP [Concomitant]
     Active Substance: ATROPINE SULFATE\DIPHENOXYLATE
  2. PRAMIPEXOLE. [Concomitant]
     Active Substance: PRAMIPEXOLE
  3. SERTRALINE [Concomitant]
     Active Substance: SERTRALINE HYDROCHLORIDE
  4. COPAXONE [Suspect]
     Active Substance: GLATIRAMER ACETATE
     Indication: MULTIPLE SCLEROSIS
     Route: 058
     Dates: start: 20150407
  5. DUTASTERIDE. [Concomitant]
     Active Substance: DUTASTERIDE
  6. TAMSULOSIN [Concomitant]
     Active Substance: TAMSULOSIN
  7. AVAPRO [Concomitant]
     Active Substance: IRBESARTAN
  8. VITAMIN D [Concomitant]
     Active Substance: VITAMIN D NOS
  9. LRBESARTAN [Concomitant]
  10. VIAGRA [Concomitant]
     Active Substance: SILDENAFIL CITRATE

REACTIONS (1)
  - Fatigue [Not Recovered/Not Resolved]
